FAERS Safety Report 5145545-4 (Version None)
Quarter: 2006Q4

REPORT INFORMATION
  Report Type: 
  Country: None (occurrence: None)
  Receive Date: 20061101
  Receipt Date: 20061025
  Transmission Date: 20070319
  Serious: Yes (Death)
  Sender: FDA-Public Use
  Company Number: 231729

PATIENT
  Age: 86 Year
  Sex: Male

DRUGS (19)
  1. RANIBIZUMAB (RANIBIZUMAB) PWDR + SOLVENT, INJECTION SOLN [Suspect]
     Indication: MACULAR DEGENERATION
  2. ASACOL [Concomitant]
  3. WELLBUTRIN [Concomitant]
  4. AVANDIA [Concomitant]
  5. GLUCOTROL [Concomitant]
  6. LASIX [Concomitant]
  7. INHALER (GENERIC COMPONENTS) NOT KNOWN [Concomitant]
  8. GLIPIZIDE [Concomitant]
  9. PREDNISONE TAB [Concomitant]
  10. PANCREASE (PANCRELIPASE) [Concomitant]
  11. ALPHAGAN [Concomitant]
  12. CALCIUM (CALCIUM NOS) [Concomitant]
  13. TRAVATAN [Concomitant]
  14. ACTONEL [Concomitant]
  15. GLUCOPHAGE [Concomitant]
  16. FAMOTIDINE [Concomitant]
  17. METFORMIN HCL [Concomitant]
  18. HUMULIN R [Concomitant]
  19. TYLENOL (CAPLET) [Concomitant]

REACTIONS (1)
  - DEATH [None]
